FAERS Safety Report 7363784-9 (Version None)
Quarter: 2011Q1

REPORT INFORMATION
  Report Type: 
  Country: None (occurrence: None)
  Receive Date: 20110321
  Receipt Date: 20110314
  Transmission Date: 20110831
  Serious: Yes (Other)
  Sender: FDA-Public Use
  Company Number: IT-US-EMD SERONO, INC.-7047905

PATIENT
  Sex: Male

DRUGS (4)
  1. REBIF [Suspect]
     Indication: MULTIPLE SCLEROSIS
     Dates: start: 20080401, end: 20110308
  2. EFFEXOR [Concomitant]
     Dates: start: 20101101
  3. DEPAKENE [Concomitant]
     Dates: start: 20061001
  4. EFFEXOR [Concomitant]
     Dates: start: 20010101

REACTIONS (4)
  - PLATELET COUNT DECREASED [None]
  - MALAISE [None]
  - CEREBRAL HAEMORRHAGE [None]
  - CULTURE URINE POSITIVE [None]
